FAERS Safety Report 5282207-7 (Version None)
Quarter: 2007Q1

REPORT INFORMATION
  Report Type: 
  Country: None (occurrence: None)
  Receive Date: 20070330
  Receipt Date: 20070320
  Transmission Date: 20070707
  Serious: Yes (Other)
  Sender: FDA-Public Use
  Company Number: JP-PFIZER INC-2007020537

PATIENT
  Sex: Female

DRUGS (12)
  1. GABAPEN [Suspect]
     Indication: EPILEPSY
     Dosage: DAILY DOSE:1200MG
     Route: 048
  2. CLOBAZAM [Suspect]
     Indication: EPILEPSY
     Dosage: DAILY DOSE:25MG
     Route: 048
  3. TEGRETOL [Suspect]
     Indication: EPILEPSY
     Dosage: DAILY DOSE:300MG
     Route: 048
  4. EXCEGRAN [Suspect]
     Indication: EPILEPSY
     Dosage: DAILY DOSE:300MG
     Route: 048
  5. LENDORMIN [Suspect]
     Indication: INSOMNIA
     Route: 048
  6. MAGNESIUM OXIDE [Concomitant]
     Indication: CONSTIPATION
     Route: 048
  7. ABILIT [Concomitant]
     Indication: DEPRESSION
     Route: 048
  8. ACETYLSALICYLIC ACID SRT [Concomitant]
     Indication: CEREBRAL INFARCTION
     Route: 048
  9. TAKEPRON [Concomitant]
     Indication: GASTRITIS
     Route: 048
  10. STOMILASE [Concomitant]
     Indication: DYSPEPSIA
     Route: 048
  11. PURSENNID [Concomitant]
     Indication: CONSTIPATION
     Route: 048
     Dates: start: 20020901
  12. LIVALO [Concomitant]
     Indication: HYPERLIPIDAEMIA
     Route: 048

REACTIONS (3)
  - DEPRESSED LEVEL OF CONSCIOUSNESS [None]
  - DIZZINESS [None]
  - DYSARTHRIA [None]
